FAERS Safety Report 8546990-7 (Version None)
Quarter: 2012Q3

REPORT INFORMATION
  Report Type: 
  Country: None (occurrence: None)
  Receive Date: 20120727
  Receipt Date: 20120306
  Transmission Date: 20120928
  Serious: No
  Sender: FDA-Public Use
  Company Number: US-ASTRAZENECA-2012SE15584

PATIENT
  Age: 5 Year
  Sex: Male

DRUGS (4)
  1. SEROQUEL [Suspect]
     Indication: AGGRESSION
     Route: 048
     Dates: start: 20120217
  2. TOPAMAX [Concomitant]
  3. BENADRYL [Concomitant]
  4. SEROQUEL [Suspect]
     Route: 048
     Dates: start: 20120229

REACTIONS (4)
  - SEXUALLY INAPPROPRIATE BEHAVIOUR [None]
  - AGGRESSION [None]
  - DISINHIBITION [None]
  - DRUG PRESCRIBING ERROR [None]
